FAERS Safety Report 9367522 (Version 1)
Quarter: 2013Q2

REPORT INFORMATION
  Report Type: Spontaneous
  Country: US (occurrence: US)
  Receive Date: 20130625
  Receipt Date: 20130625
  Transmission Date: 20140414
  Serious: No
  Sender: FDA-Public Use
  Company Number: US-ASTELLAS-2012US007279

PATIENT
  Age: 79 Year
  Sex: Female

DRUGS (4)
  1. VESICARE [Suspect]
     Indication: HYPERTONIC BLADDER
     Dosage: 5 MG, UID/QD
     Route: 048
     Dates: start: 20120823, end: 20120906
  2. VESICARE [Suspect]
     Dosage: 10 MG, UID/QD
     Route: 048
  3. VESICARE [Suspect]
     Dosage: 5 MG, UID/QD
     Route: 048
     Dates: start: 201208
  4. VESICARE [Suspect]
     Dosage: 20 MG, TWO 5 MG TABLETS ONCE DAILY AND ONE 10 MG TABLET ONCE DAILY
     Dates: start: 201207

REACTIONS (2)
  - Overdose [Unknown]
  - Drug ineffective [Unknown]
